FAERS Safety Report 12861073 (Version 1)
Quarter: 2016Q4

REPORT INFORMATION
  Report Type: Spontaneous
  Country: CA (occurrence: CA)
  Receive Date: 20161019
  Receipt Date: 20161019
  Transmission Date: 20170207
  Serious: Yes (Life-Threatening, Other)
  Sender: FDA-Public Use
  Company Number: CA-PAR PHARMACEUTICAL COMPANIES-2016SCPR015951

PATIENT

DRUGS (1)
  1. ADRENALIN [Suspect]
     Active Substance: EPINEPHRINE
     Indication: STATUS ASTHMATICUS
     Dosage: 0.5 MG, SINGLE

REACTIONS (3)
  - Off label use [Unknown]
  - Ventricular tachycardia [Unknown]
  - Incorrect route of drug administration [Unknown]
